FAERS Safety Report 10917483 (Version 1)
Quarter: 2015Q1

REPORT INFORMATION
  Report Type: Spontaneous
  Country: US (occurrence: None)
  Receive Date: 20150312
  Receipt Date: 20150312
  Transmission Date: 20150721
  Serious: Yes (Life-Threatening, Hospitalization)
  Sender: FDA-Public Use
  Company Number: None

PATIENT
  Age: 86 Year
  Sex: Male
  Weight: 90.72 kg

DRUGS (3)
  1. HEART MEDS [Concomitant]
  2. SERTRALINE HCL 25 MG / ZOLOFT GENERIC [Suspect]
     Active Substance: SERTRALINE HYDROCHLORIDE
     Indication: DEPRESSION
     Dosage: 1 PILL 1 A DAY ORALLY
     Route: 048
     Dates: start: 201412, end: 20150213
  3. CHOLESTEROL MEDS [Concomitant]

REACTIONS (4)
  - Self injurious behaviour [None]
  - Pain [None]
  - Cholelithiasis [None]
  - Suicide attempt [None]

NARRATIVE: CASE EVENT DATE: 20150212
